FAERS Safety Report 16944509 (Version 1)
Quarter: 2019Q4

REPORT INFORMATION
  Report Type: Spontaneous
  Country: GB (occurrence: GB)
  Receive Date: 20191022
  Receipt Date: 20191022
  Transmission Date: 20200122
  Serious: Yes (Disabling)
  Sender: FDA-Public Use
  Company Number: GB-TEVA-2019-GB-1124477

PATIENT
  Age: 80 Year
  Sex: Female
  Weight: 76 kg

DRUGS (22)
  1. COTRIMOXAZOLE [Concomitant]
     Active Substance: SULFAMETHOXAZOLE\TRIMETHOPRIM
  2. NETUPITANT [Concomitant]
     Active Substance: NETUPITANT
  3. DOXORUBICIN [Concomitant]
     Active Substance: DOXORUBICIN
  4. RITUXIMAB. [Concomitant]
     Active Substance: RITUXIMAB
  5. HYDROCORTISONE. [Concomitant]
     Active Substance: HYDROCORTISONE
  6. CORACTEN [Concomitant]
     Active Substance: NIFEDIPINE
  7. PALONOSETRON HYDROCHLORIDE. [Concomitant]
     Active Substance: PALONOSETRON HYDROCHLORIDE
  8. FLECAINIDE ACETATE. [Concomitant]
     Active Substance: FLECAINIDE ACETATE
  9. DOXAZOSIN [Concomitant]
     Active Substance: DOXAZOSIN MESYLATE
  10. RIVAROXABAN [Concomitant]
     Active Substance: RIVAROXABAN
  11. METFORMIN [Concomitant]
     Active Substance: METFORMIN HYDROCHLORIDE
  12. CANDESARTAN CILEXETIL. [Concomitant]
     Active Substance: CANDESARTAN CILEXETIL
  13. VINCRISTINE [Suspect]
     Active Substance: VINCRISTINE
     Indication: NON-HODGKIN^S LYMPHOMA
     Dosage: 1 MG
     Route: 042
     Dates: start: 20190801, end: 20190801
  14. ACCRETE D3 [Concomitant]
     Active Substance: CALCIUM CARBONATE\CHOLECALCIFEROL
  15. PARACETAMOL [Concomitant]
     Active Substance: ACETAMINOPHEN
  16. CHLORPHENAMINE [Concomitant]
     Active Substance: CHLORPHENIRAMINE MALEATE
  17. METHOTREXATE. [Concomitant]
     Active Substance: METHOTREXATE
  18. ACICLOVIR [Concomitant]
     Active Substance: ACYCLOVIR
  19. CYCLOPHOSPHAMIDE MONOHYDRATE [Concomitant]
     Active Substance: CYCLOPHOSPHAMIDE
  20. ALLOPURINOL. [Concomitant]
     Active Substance: ALLOPURINOL
  21. PREDNISOLONE. [Concomitant]
     Active Substance: PREDNISOLONE
  22. OMEPRAZOLE. [Concomitant]
     Active Substance: OMEPRAZOLE

REACTIONS (1)
  - Sudden hearing loss [Recovered/Resolved with Sequelae]

NARRATIVE: CASE EVENT DATE: 20190807
